FAERS Safety Report 9471040 (Version 1)
Quarter: 2013Q3

REPORT INFORMATION
  Report Type: Spontaneous
  Country: GB (occurrence: None)
  Receive Date: 20130815
  Receipt Date: 20130815
  Transmission Date: 20140515
  Serious: Yes (Disabling)
  Sender: FDA-Public Use
  Company Number: GER/UKI/13/0033965

PATIENT
  Age: 63 Year
  Sex: Female
  Weight: 64 kg

DRUGS (7)
  1. FEXOFENADINE [Suspect]
     Indication: ANGIOEDEMA
     Route: 048
     Dates: start: 20130603, end: 20130605
  2. AMITRIPTYLINE (AMITRIPTYLINE) [Concomitant]
  3. METOCLOPRAMID (METOCLOPRAMIDE) [Concomitant]
  4. NAPROXEN (NAPROXEN) [Concomitant]
  5. OMEPRAZOLE (OMEPRAZOLE) [Concomitant]
  6. PREGABALIN (PREGABALIN) [Concomitant]
  7. SOLPADOL (PANADEINE CO) [Concomitant]

REACTIONS (2)
  - Heart rate increased [None]
  - Angioedema [None]
